FAERS Safety Report 13413938 (Version 2)
Quarter: 2017Q2

REPORT INFORMATION
  Report Type: Spontaneous
  Country: GB (occurrence: GB)
  Receive Date: 20170406
  Receipt Date: 20170406
  Transmission Date: 20170830
  Serious: Yes (Other)
  Sender: FDA-Public Use
  Company Number: GB-TEVA-754321ACC

PATIENT
  Age: 23 Month
  Sex: Female

DRUGS (1)
  1. AMOXICILLIN. [Suspect]
     Active Substance: AMOXICILLIN
     Indication: TONSILLITIS
     Dosage: 15 ML DAILY;
     Route: 048
     Dates: start: 20170305, end: 20170307

REACTIONS (5)
  - Hypersensitivity [Recovering/Resolving]
  - Skin haemorrhage [Recovering/Resolving]
  - Pruritus [Recovering/Resolving]
  - Reaction to drug excipients [Recovering/Resolving]
  - Rash [Recovering/Resolving]
